FAERS Safety Report 18567970 (Version 2)
Quarter: 2021Q3

REPORT INFORMATION
  Report Type: Spontaneous
  Country: US (occurrence: US)
  Receive Date: 20201202
  Receipt Date: 20210913
  Transmission Date: 20211014
  Serious: Yes (Hospitalization, Other)
  Sender: FDA-Public Use
  Company Number: US-AUROBINDO-AUR-APL-2020-058552

PATIENT
  Age: 77 Year
  Sex: Male

DRUGS (1)
  1. TADALAFIL. [Suspect]
     Active Substance: TADALAFIL
     Indication: URINARY RETENTION
     Dosage: UNK
     Route: 065

REACTIONS (8)
  - Headache [Unknown]
  - Nausea [Unknown]
  - Extra dose administered [Unknown]
  - Visual impairment [Unknown]
  - Vision blurred [Unknown]
  - Aphasia [Unknown]
  - Cerebral haemorrhage [Unknown]
  - Vomiting [Unknown]
